FAERS Safety Report 16768340 (Version 17)
Quarter: 2022Q3

REPORT INFORMATION
  Report Type: Spontaneous
  Country: GB (occurrence: GB)
  Receive Date: 20190903
  Receipt Date: 20220907
  Transmission Date: 20221027
  Serious: Yes (Death, Congenital Anomaly, Other)
  Sender: FDA-Public Use
  Company Number: PHHY2019GB201729

PATIENT
  Age: 4 Day
  Sex: Male
  Weight: 2.85 kg

DRUGS (40)
  1. NEVIRAPINE [Suspect]
     Active Substance: NEVIRAPINE
     Indication: Foetal exposure during pregnancy
     Dosage: MATERNAL DOSE: 400 MG, QD
     Route: 064
  2. NEVIRAPINE [Suspect]
     Active Substance: NEVIRAPINE
     Dosage: MATERNAL DOSE: 400 MG, QD (400 MG/DAY)
     Route: 064
  3. NEVIRAPINE [Suspect]
     Active Substance: NEVIRAPINE
     Dosage: MATERNAL DOSE: UNKNOWN
     Route: 064
  4. NEVIRAPINE [Suspect]
     Active Substance: NEVIRAPINE
     Dosage: MATERNAL DOSE: 400 MG, QD (400 MG/DAY)
     Route: 064
  5. NIFEDIPINE [Suspect]
     Active Substance: NIFEDIPINE
     Indication: Foetal exposure during pregnancy
     Dosage: MATERNAL DOSE: UNK (1 TRIMESTER)
     Route: 064
  6. NIFEDIPINE [Suspect]
     Active Substance: NIFEDIPINE
     Dosage: MATERNAL DOSE: UNK
     Route: 064
  7. NIFEDIPINE [Suspect]
     Active Substance: NIFEDIPINE
     Dosage: MATERNAL DOSE: UNK
     Route: 064
  8. LABETALOL [Suspect]
     Active Substance: LABETALOL\LABETALOL HYDROCHLORIDE
     Indication: Foetal exposure during pregnancy
     Dosage: MATERNAL DOSE: 1 DOSAGE FORM
     Route: 064
  9. LABETALOL [Suspect]
     Active Substance: LABETALOL\LABETALOL HYDROCHLORIDE
     Dosage: MATERNAL DOSE; 1 DOSAGE FORM (1 DOSAGE FORM (1 TRIMESTER))
     Route: 064
  10. LABETALOL [Suspect]
     Active Substance: LABETALOL\LABETALOL HYDROCHLORIDE
     Dosage: MATERNAL DOSE: UNK (39 WEEKS)
     Route: 064
  11. LABETALOL [Suspect]
     Active Substance: LABETALOL\LABETALOL HYDROCHLORIDE
     Dosage: MATERNAL DOSE; 1 DOSAGE FORM (1 DOSAGE FORM (1 TRIMESTER)
     Route: 064
  12. ABACAVIR\LAMIVUDINE [Suspect]
     Active Substance: ABACAVIR\LAMIVUDINE
     Indication: Foetal exposure during pregnancy
     Dosage: MATERNAL DOSE: UNK
     Route: 064
  13. ABACAVIR\LAMIVUDINE [Suspect]
     Active Substance: ABACAVIR\LAMIVUDINE
     Dosage: MATERNAL DOSE: 1 DOSAGE FORM, QD (600 MG/ 300 MG)
     Route: 064
  14. ABACAVIR\LAMIVUDINE [Suspect]
     Active Substance: ABACAVIR\LAMIVUDINE
     Dosage: MATERNAL DOSE: 400 MG QD
     Route: 064
  15. VITAMIN D [Suspect]
     Active Substance: VITAMIN D NOS
     Indication: Foetal exposure during pregnancy
     Dosage: MATERNAL DOSE: UNK (UNK, PRIOR TO CONCEPTION, DURING 1, 2 AND 3 TRIMESTER)
     Route: 064
  16. VITAMIN D [Suspect]
     Active Substance: VITAMIN D NOS
     Dosage: MATERNAL DOSE: UNK
     Route: 064
  17. ERGOCALCIFEROL [Suspect]
     Active Substance: ERGOCALCIFEROL
     Indication: Foetal exposure during pregnancy
     Dosage: MATERNAL DOSE: UNK
     Route: 064
  18. ERGOCALCIFEROL [Suspect]
     Active Substance: ERGOCALCIFEROL
     Dosage: MATERNAL DOSE: UNK
     Route: 064
  19. ERGOCALCIFEROL [Suspect]
     Active Substance: ERGOCALCIFEROL
     Dosage: MATERNAL DOSE: UNK
     Route: 064
  20. COMBIVIR [Suspect]
     Active Substance: LAMIVUDINE\ZIDOVUDINE
     Indication: Foetal exposure during pregnancy
     Dosage: MATERNAL DOSE: 900 MG, QD (600 MG/300MG)
     Route: 064
  21. CHOLECALCIFEROL [Suspect]
     Active Substance: CHOLECALCIFEROL
     Indication: Foetal exposure during pregnancy
     Dosage: MATERNAL DOSE: UNK
     Route: 064
  22. CHOLECALCIFEROL [Suspect]
     Active Substance: CHOLECALCIFEROL
     Dosage: MATERNAL DOSE: UNK
     Route: 064
  23. CHOLECALCIFEROL [Suspect]
     Active Substance: CHOLECALCIFEROL
     Dosage: MATERNAL DOSE: UNK
     Route: 064
  24. VIRAMUNE [Suspect]
     Active Substance: NEVIRAPINE
     Indication: Foetal exposure during pregnancy
     Dosage: MATERNAL DOSE: 400 MG, QD
     Route: 064
  25. VIRAMUNE [Suspect]
     Active Substance: NEVIRAPINE
     Dosage: MATERNAL DOSE: 400 MG, QD
     Route: 064
  26. VIRAMUNE [Suspect]
     Active Substance: NEVIRAPINE
     Dosage: MATERNAL DOSE: 400 MG, QD
     Route: 064
  27. VIRAMUNE [Suspect]
     Active Substance: NEVIRAPINE
     Dosage: MATERNAL DOSE: UNK
     Route: 065
  28. ASPIRIN [Suspect]
     Active Substance: ASPIRIN
     Indication: Foetal exposure during pregnancy
     Dosage: MATERNAL DOSE: UNK ( 1 TRIMESTER)
     Route: 064
  29. ASPIRIN [Suspect]
     Active Substance: ASPIRIN
     Dosage: MATERNAL DOSE (UNK ( 1 TRIMESTER)
     Route: 064
  30. ASPIRIN [Suspect]
     Active Substance: ASPIRIN
     Dosage: MATERNAL DOSE (UNK)
     Route: 064
  31. LAMIVUDINE [Suspect]
     Active Substance: LAMIVUDINE
     Indication: Foetal exposure during pregnancy
     Dosage: MATERNAL DOSE (1 DOSAGE FORM, QD (POWDER FOR INFUSION), DURING FIRST)
     Route: 064
  32. LAMIVUDINE [Suspect]
     Active Substance: LAMIVUDINE
     Dosage: MATERNAL DOSE (1 DOSAGE FORM) (D (DOSE: 1 TABLET/CAPSULE; STRENGTH: 600MG/ 300 MG)
     Route: 064
  33. LAMIVUDINE [Suspect]
     Active Substance: LAMIVUDINE
     Dosage: MATERNAL DOSE (1 DOSAGE FORM, QD)
     Route: 064
  34. ABACAVIR [Suspect]
     Active Substance: ABACAVIR
     Indication: Product used for unknown indication
     Dosage: MATERNAL DOSE (400 DOSAGE FORM, QD)
     Route: 064
  35. ABACAVIR [Suspect]
     Active Substance: ABACAVIR
     Dosage: MATERNAL DOSE (DOSAGE FORM, QD, MATERNAL DOSE: 400 QD)
     Route: 064
  36. ABACAVIR [Suspect]
     Active Substance: ABACAVIR
     Dosage: MATERNAL DOSE (UNK UNK, QD)
     Route: 064
  37. ABACAVIR [Suspect]
     Active Substance: ABACAVIR
     Dosage: MATERNAL DOSE (1 DOSAGE FORM, QD (FILM COATED TABLETS) (DOSE: 1)
     Route: 064
  38. ABACAVIR [Suspect]
     Active Substance: ABACAVIR
     Dosage: MATERNAL DOSE (400 DOSAGE FORM, QD (400 DOSAGE FORM, ONCE A DAY)
     Route: 064
  39. ABACAVIR [Suspect]
     Active Substance: ABACAVIR
     Dosage: MATERNAL DOSE (1 DOSAGE FORM, QD)
     Route: 064
  40. VITAMIN D2 [Concomitant]
     Active Substance: ERGOCALCIFEROL
     Indication: Foetal exposure during pregnancy
     Dosage: MATERNAL DOSE (PRIOR TO CONCEPTION, DURING 1, 2 AND 3 TRIMESTER)
     Route: 064

REACTIONS (14)
  - Death [Fatal]
  - Polydactyly [Fatal]
  - Atrioventricular septal defect [Fatal]
  - Trisomy 21 [Fatal]
  - Pulmonary hypertension [Fatal]
  - Gene mutation [Fatal]
  - Congenital central nervous system anomaly [Fatal]
  - Dandy-Walker syndrome [Fatal]
  - Speech disorder developmental [Fatal]
  - Neurodevelopmental disorder [Fatal]
  - Macrocephaly [Fatal]
  - Ataxia [Fatal]
  - Attention deficit hyperactivity disorder [Fatal]
  - Foetal exposure during pregnancy [Fatal]

NARRATIVE: CASE EVENT DATE: 20190816
